FAERS Safety Report 7633125-8 (Version None)
Quarter: 2011Q3

REPORT INFORMATION
  Report Type: 
  Country: None (occurrence: None)
  Receive Date: 20110725
  Receipt Date: 20110723
  Transmission Date: 20111222
  Serious: Yes (Hospitalization)
  Sender: FDA-Public Use
  Company Number: PHHO2009DE03401

PATIENT
  Sex: Male
  Weight: 76.3 kg

DRUGS (1)
  1. EXELON [Suspect]
     Indication: DEMENTIA ALZHEIMER'S TYPE
     Dosage: 10CM2
     Dates: start: 20090114

REACTIONS (5)
  - ANGINA PECTORIS [None]
  - HYPERTENSION [None]
  - DYSPNOEA [None]
  - CONCOMITANT DISEASE PROGRESSION [None]
  - DRUG INEFFECTIVE [None]
